FAERS Safety Report 22306206 (Version 1)
Quarter: 2023Q2

REPORT INFORMATION
  Report Type: Spontaneous
  Country: US (occurrence: US)
  Receive Date: 20230511
  Receipt Date: 20230511
  Transmission Date: 20230722
  Serious: No
  Sender: FDA-Public Use
  Company Number: US-GLAXOSMITHKLINE-USCH2023AMR019948

PATIENT
  Sex: Female

DRUGS (1)
  1. TERBINAFINE [Interacting]
     Active Substance: TERBINAFINE
     Indication: Nail infection
     Dosage: UNK
     Route: 065

REACTIONS (3)
  - Psychiatric symptom [Not Recovered/Not Resolved]
  - Disease recurrence [Not Recovered/Not Resolved]
  - Drug interaction [Unknown]
